FAERS Safety Report 24248226 (Version 1)
Quarter: 2024Q3

REPORT INFORMATION
  Report Type: Spontaneous
  Country: US (occurrence: US)
  Receive Date: 20240826
  Receipt Date: 20240826
  Transmission Date: 20241017
  Serious: Yes (Other)
  Sender: MYLAN
  Company Number: US-MYLANLABS-2024M1077526

PATIENT
  Age: 31 Year
  Sex: Male

DRUGS (5)
  1. XANAX [Suspect]
     Active Substance: ALPRAZOLAM
     Indication: Dizziness
     Dosage: UNK
     Route: 065
  2. ALPRAZOLAM [Suspect]
     Active Substance: ALPRAZOLAM
     Indication: Dizziness
     Dosage: UNK
     Route: 065
  3. GENOTROPIN [Suspect]
     Active Substance: SOMATROPIN
     Indication: Infertility
     Dosage: 1 MILLIGRAM, QD
     Route: 065
  4. GENOTROPIN [Suspect]
     Active Substance: SOMATROPIN
     Dosage: UNK (REDUCED THE DOSE BY HALF)
     Route: 065
  5. GENOTROPIN [Suspect]
     Active Substance: SOMATROPIN
     Dosage: UNK, AM
     Route: 065

REACTIONS (4)
  - Loss of consciousness [Unknown]
  - Hot flush [Unknown]
  - Blood glucose abnormal [Unknown]
  - Product use in unapproved indication [Unknown]
